FAERS Safety Report 7977678-9 (Version None)
Quarter: 2011Q4

REPORT INFORMATION
  Report Type: 
  Country: None (occurrence: None)
  Receive Date: 20111214
  Receipt Date: 20111128
  Transmission Date: 20120403
  Serious: No
  Sender: FDA-Public Use
  Company Number: US-AMGEN-USASP2011062753

PATIENT
  Age: 56 Year
  Sex: Male

DRUGS (1)
  1. ENBREL [Suspect]
     Indication: RHEUMATOID ARTHRITIS
     Dosage: 50 MG, QWK
     Dates: start: 20110405

REACTIONS (8)
  - INFLUENZA LIKE ILLNESS [None]
  - MYALGIA [None]
  - RHINORRHOEA [None]
  - LETHARGY [None]
  - NAUSEA [None]
  - POLLAKIURIA [None]
  - DIARRHOEA [None]
  - ARTHRALGIA [None]
